FAERS Safety Report 6612131-6 (Version None)
Quarter: 2010Q1

REPORT INFORMATION
  Report Type: 
  Country: None (occurrence: None)
  Receive Date: 20100302
  Receipt Date: 20100302
  Transmission Date: 20100710
  Serious: Yes (Other)
  Sender: FDA-Public Use
  Company Number: None

PATIENT
  Sex: Female
  Weight: 54.4316 kg

DRUGS (1)
  1. DETROL LA [Suspect]
     Indication: INCONTINENCE
     Dosage: 4 MG CAP ONCE A DAY PO
     Route: 048
     Dates: start: 20050315, end: 20100129

REACTIONS (3)
  - AMNESIA [None]
  - CEREBRAL ISCHAEMIA [None]
  - DEPRESSION [None]
